FAERS Safety Report 6006987-8 (Version None)
Quarter: 2008Q4

REPORT INFORMATION
  Report Type: 
  Country: None (occurrence: None)
  Receive Date: 20081217
  Receipt Date: 20071210
  Transmission Date: 20090506
  Serious: No
  Sender: FDA-Public Use
  Company Number: US-ASTRAZENECA-2007UW28196

PATIENT
  Age: 71 Year
  Sex: Male
  Weight: 104.3 kg

DRUGS (4)
  1. CRESTOR [Suspect]
     Indication: BLOOD CHOLESTEROL INCREASED
     Route: 048
     Dates: start: 20071121
  2. PRILOSEC [Concomitant]
  3. ALTACE [Concomitant]
  4. LEVOTHYROXINE SODIUM [Concomitant]

REACTIONS (3)
  - ASTHENIA [None]
  - GRIP STRENGTH DECREASED [None]
  - MYALGIA [None]
